FAERS Safety Report 24059602 (Version 1)
Quarter: 2024Q3

REPORT INFORMATION
  Report Type: Spontaneous
  Country: US (occurrence: US)
  Receive Date: 20240708
  Receipt Date: 20240708
  Transmission Date: 20241016
  Serious: Yes (Other)
  Sender: MYLAN
  Company Number: US-MYLANLABS-2024M1060815

PATIENT
  Age: 54 Year
  Sex: Female

DRUGS (9)
  1. PREDNISONE [Suspect]
     Active Substance: PREDNISONE
     Indication: Pyoderma gangrenosum
     Dosage: 60 MILLIGRAM
     Route: 065
  2. PREDNISONE [Suspect]
     Active Substance: PREDNISONE
     Dosage: UNK ,THERAPY WAS TAPERED
     Route: 065
  3. CYCLOSPORINE [Suspect]
     Active Substance: CYCLOSPORINE
     Indication: Pyoderma gangrenosum
     Dosage: UNK
     Route: 065
  4. INFLIXIMAB [Concomitant]
     Active Substance: INFLIXIMAB
     Indication: Pyoderma gangrenosum
     Dosage: UNK, 8 WEEKS, INFUSION
     Route: 065
  5. INFLIXIMAB [Concomitant]
     Active Substance: INFLIXIMAB
     Dosage: AGAIN INITIATED; DOSE NOT STATED
     Route: 065
  6. MYCOPHENOLATE MOFETIL [Concomitant]
     Active Substance: MYCOPHENOLATE MOFETIL
     Indication: Pyoderma gangrenosum
     Dosage: INITIAL DOSE NOT STATED
     Route: 065
  7. MYCOPHENOLATE MOFETIL [Concomitant]
     Active Substance: MYCOPHENOLATE MOFETIL
     Dosage: 2.5 GRAM, QD, MAINTENANCE
     Route: 065
  8. Immunoglobulin [Concomitant]
     Indication: Pyoderma gangrenosum
     Dosage: INITIAL DOSE NOT STATED
     Route: 042
  9. Immunoglobulin [Concomitant]
     Dosage: UNK, MONTHLY, MAINTENANCE
     Route: 042

REACTIONS (3)
  - Drug ineffective [Unknown]
  - Swollen tongue [Unknown]
  - Off label use [Unknown]
